FAERS Safety Report 6743244-6 (Version None)
Quarter: 2010Q2

REPORT INFORMATION
  Report Type: 
  Country: None (occurrence: None)
  Receive Date: 20100527
  Receipt Date: 20100527
  Transmission Date: 20101027
  Serious: Yes (Life-Threatening)
  Sender: FDA-Public Use
  Company Number: None

PATIENT
  Age: 5 Year
  Sex: Female
  Weight: 18.5975 kg

DRUGS (1)
  1. CHILDREN'S MOTRIN [Suspect]
     Indication: PYREXIA
     Dosage: 1 TSP EVERY 4-6 HRS PO ONLY ONE DOSE
     Route: 048
     Dates: start: 20091106, end: 20091106

REACTIONS (2)
  - LOCAL SWELLING [None]
  - SWELLING FACE [None]
